FAERS Safety Report 10006416 (Version 2)
Quarter: 2014Q2

REPORT INFORMATION
  Report Type: Spontaneous
  Country: US (occurrence: US)
  Receive Date: 20140313
  Receipt Date: 20140507
  Transmission Date: 20141212
  Serious: Yes (Hospitalization)
  Sender: FDA-Public Use
  Company Number: US-GILEAD-2014-0096534

PATIENT
  Age: 23 Year
  Sex: Female

DRUGS (6)
  1. LETAIRIS [Suspect]
     Indication: PULMONARY HYPERTENSION
     Dosage: 5 MG, UNK
     Route: 065
     Dates: start: 20110715
  2. ALDACTONE                          /00006201/ [Concomitant]
  3. RIOCIGUAT [Concomitant]
  4. COUMADIN                           /00014802/ [Concomitant]
  5. REMODULIN [Concomitant]
  6. TADALAFIL [Concomitant]

REACTIONS (1)
  - Fluid retention [Recovered/Resolved]
